FAERS Safety Report 6983841-6 (Version None)
Quarter: 2010Q3

REPORT INFORMATION
  Report Type: 
  Country: None (occurrence: None)
  Receive Date: 20100914
  Receipt Date: 20090429
  Transmission Date: 20110219
  Serious: No
  Sender: FDA-Public Use
  Company Number: US-WYE-H08714809

PATIENT
  Age: 45 Year
  Sex: Male
  Weight: 108.96 kg

DRUGS (5)
  1. ADVIL PM [Suspect]
     Indication: ANALGESIC THERAPY
     Dosage: 2 LIQUI-GELS BEFORE SLEEP
     Route: 048
     Dates: start: 20090318, end: 20090318
  2. ADVIL PM [Suspect]
     Indication: INSOMNIA
     Dosage: UNKNOWN
     Route: 048
  3. DIOVAN [Concomitant]
  4. CRESTOR [Concomitant]
  5. SYNTHROID [Concomitant]

REACTIONS (2)
  - DRUG EFFECT DECREASED [None]
  - PRODUCT QUALITY ISSUE [None]
